FAERS Safety Report 10674297 (Version 1)
Quarter: 2014Q4

REPORT INFORMATION
  Report Type: Spontaneous
  Country: US (occurrence: None)
  Receive Date: 20141223
  Receipt Date: 20141223
  Transmission Date: 20150529
  Serious: Yes (Disabling, Other)
  Sender: FDA-Public Use
  Company Number: None

PATIENT
  Age: 45 Year
  Sex: Female
  Weight: 167.83 kg

DRUGS (2)
  1. DULOXETINE [Suspect]
     Active Substance: DULOXETINE
     Indication: PAIN
     Dosage: 3 PILLS ONCE DAILY TAKEN BY MOUTH
     Route: 048
  2. DULOXETINE [Suspect]
     Active Substance: DULOXETINE
     Indication: DEPRESSION
     Dosage: 3 PILLS ONCE DAILY TAKEN BY MOUTH
     Route: 048

REACTIONS (13)
  - Anger [None]
  - Crying [None]
  - Fatigue [None]
  - Somnolence [None]
  - Activities of daily living impaired [None]
  - Headache [None]
  - Pain [None]
  - Discomfort [None]
  - Suicidal ideation [None]
  - Quality of life decreased [None]
  - Vertigo [None]
  - Anxiety [None]
  - Product substitution issue [None]

NARRATIVE: CASE EVENT DATE: 20141220
